FAERS Safety Report 11100668 (Version 1)
Quarter: 2015Q2

REPORT INFORMATION
  Report Type: Spontaneous
  Country: US (occurrence: None)
  Receive Date: 20150506
  Receipt Date: 20150506
  Transmission Date: 20150821
  Serious: Yes (Hospitalization, Other)
  Sender: FDA-Public Use
  Company Number: SP09366

PATIENT
  Age: 33 Year
  Sex: Female
  Weight: 60.33 kg

DRUGS (1)
  1. XIFAXAN [Suspect]
     Active Substance: RIFAXIMIN
     Indication: IRRITABLE BOWEL SYNDROME
     Dosage: (550 MG, 2 IN 1 D)
     Route: 048
     Dates: start: 20150410, end: 20150413

REACTIONS (5)
  - Pyelonephritis [None]
  - Pyrexia [None]
  - Abdominal pain [None]
  - Diarrhoea [None]
  - Gastroenteritis viral [None]

NARRATIVE: CASE EVENT DATE: 20150413
